FAERS Safety Report 6193829-3 (Version None)
Quarter: 2009Q2

REPORT INFORMATION
  Report Type: 
  Country: None (occurrence: None)
  Receive Date: 20090514
  Receipt Date: 20090507
  Transmission Date: 20091009
  Serious: Yes (Disabling)
  Sender: FDA-Public Use
  Company Number: OSCN-NO-0905S-0240

PATIENT
  Age: 25 Year
  Sex: Male
  Weight: 59 kg

DRUGS (14)
  1. OMNISCAN [Suspect]
     Indication: DRUG USE FOR UNKNOWN INDICATION
     Dosage: SEE IMAGE
     Route: 042
     Dates: start: 20040318, end: 20040318
  2. OMNISCAN [Suspect]
     Indication: DRUG USE FOR UNKNOWN INDICATION
     Dosage: SEE IMAGE
     Route: 042
     Dates: start: 20040510, end: 20040510
  3. OMNISCAN [Suspect]
     Indication: DRUG USE FOR UNKNOWN INDICATION
     Dosage: SEE IMAGE
     Route: 042
     Dates: start: 20040723, end: 20040723
  4. OMNISCAN [Suspect]
     Indication: DRUG USE FOR UNKNOWN INDICATION
     Dosage: SEE IMAGE
     Route: 042
     Dates: start: 20040812, end: 20040812
  5. OMNISCAN [Suspect]
     Indication: DRUG USE FOR UNKNOWN INDICATION
     Dosage: SEE IMAGE
     Route: 042
     Dates: start: 20041014, end: 20041014
  6. OMNISCAN [Suspect]
     Indication: DRUG USE FOR UNKNOWN INDICATION
     Dosage: SEE IMAGE
     Route: 042
     Dates: start: 20050119, end: 20050119
  7. OMNISCAN [Suspect]
     Indication: DRUG USE FOR UNKNOWN INDICATION
     Dosage: SEE IMAGE
     Route: 042
     Dates: start: 20050803, end: 20050803
  8. OMNISCAN [Suspect]
     Indication: DRUG USE FOR UNKNOWN INDICATION
     Dosage: SEE IMAGE
     Route: 042
     Dates: start: 20060120, end: 20060120
  9. OMNISCAN [Suspect]
     Indication: DRUG USE FOR UNKNOWN INDICATION
     Dosage: SEE IMAGE
     Route: 042
     Dates: start: 20060419, end: 20060419
  10. OMNISCAN [Suspect]
     Indication: DRUG USE FOR UNKNOWN INDICATION
     Dosage: SEE IMAGE
     Route: 042
     Dates: start: 20061010, end: 20061010
  11. OMNISCAN [Suspect]
     Indication: DRUG USE FOR UNKNOWN INDICATION
     Dosage: SEE IMAGE
     Route: 042
     Dates: start: 20061109, end: 20061109
  12. TACROLIMUS [Concomitant]
  13. PREDNISONE [Concomitant]
  14. EPOGEN [Concomitant]

REACTIONS (2)
  - GAIT DISTURBANCE [None]
  - NEPHROGENIC SYSTEMIC FIBROSIS [None]
